FAERS Safety Report 6914066-8 (Version None)
Quarter: 2010Q3

REPORT INFORMATION
  Report Type: 
  Country: None (occurrence: None)
  Receive Date: 20100809
  Receipt Date: 20100802
  Transmission Date: 20110219
  Serious: Yes (Death, Hospitalization, Other)
  Sender: FDA-Public Use
  Company Number: PHHY2010BR50963

PATIENT
  Sex: Male

DRUGS (2)
  1. VOLTAREN [Suspect]
     Indication: GOUT
     Dosage: 1 TABLET IN THE MORNING
     Route: 048
  2. SERETIDE [Concomitant]
     Indication: RESPIRATORY DISORDER
     Dosage: 1 SACHET DAILY
     Route: 048

REACTIONS (8)
  - BACK PAIN [None]
  - BEDRIDDEN [None]
  - CEREBROVASCULAR ACCIDENT [None]
  - MULTI-ORGAN FAILURE [None]
  - PAIN IN EXTREMITY [None]
  - PNEUMONIA [None]
  - PROSTATE CANCER [None]
  - URINARY TRACT INFECTION [None]
